FAERS Safety Report 15002968 (Version 2)
Quarter: 2018Q4

REPORT INFORMATION
  Report Type: Report from Study
  Country: CA (occurrence: CA)
  Receive Date: 20180612
  Receipt Date: 20181206
  Transmission Date: 20190204
  Serious: Yes (Life-Threatening, Hospitalization)
  Sender: FDA-Public Use
  Company Number: CA-HLSUS-2018-CA-000899

PATIENT
  Sex: Male

DRUGS (5)
  1. CLOZAPINE. [Suspect]
     Active Substance: CLOZAPINE
     Indication: PRODUCT USED FOR UNKNOWN INDICATION
  2. RAMIPRIL. [Concomitant]
     Active Substance: RAMIPRIL
     Dosage: 10MG
  3. ROSUVASTATIN. [Concomitant]
     Active Substance: ROSUVASTATIN
     Dosage: 10MG
  4. PROPYL ALCOHOL [Concomitant]
     Dosage: 40MG
  5. AMLODIPINE [Concomitant]
     Active Substance: AMLODIPINE BESYLATE
     Dosage: 2.5MG

REACTIONS (7)
  - Troponin increased [Unknown]
  - Brain natriuretic peptide increased [Unknown]
  - Cardiac failure [Unknown]
  - Refusal of treatment by patient [Unknown]
  - Tachycardia [Unknown]
  - Drug titration error [Unknown]
  - Myocarditis [Unknown]
